FAERS Safety Report 23250104 (Version 2)
Quarter: 2023Q4

REPORT INFORMATION
  Report Type: Spontaneous
  Country: US (occurrence: US)
  Receive Date: 20231201
  Receipt Date: 20231212
  Transmission Date: 20240109
  Serious: Yes (Other)
  Sender: FDA-Public Use
  Company Number: US-TAKEDA-2023TUS114415

PATIENT
  Age: 70 Year
  Sex: Female

DRUGS (4)
  1. HUMAN IMMUNOGLOBULIN G [Suspect]
     Active Substance: HUMAN IMMUNOGLOBULIN G
     Indication: Epstein-Barr viraemia
     Dosage: 500 MILLIGRAM/KILOGRAM
     Route: 042
  2. MARIBAVIR [Suspect]
     Active Substance: MARIBAVIR
     Indication: Epstein-Barr viraemia
     Dosage: 200 MILLIGRAM, BID
     Route: 065
  3. TACROLIMUS [Concomitant]
     Active Substance: TACROLIMUS
     Dosage: UNK
     Route: 065
  4. PREDNISONE [Concomitant]
     Active Substance: PREDNISONE
     Dosage: 2.5 MILLIGRAM, QD
     Route: 065

REACTIONS (4)
  - Haemolytic anaemia [Unknown]
  - Hypertransaminasaemia [Unknown]
  - Myalgia [Unknown]
  - Product use in unapproved indication [Unknown]
